FAERS Safety Report 7903751-7 (Version None)
Quarter: 2011Q4

REPORT INFORMATION
  Report Type: 
  Country: None (occurrence: None)
  Receive Date: 20111109
  Receipt Date: 20111104
  Transmission Date: 20120403
  Serious: Yes (Death, Other)
  Sender: FDA-Public Use
  Company Number: PHHY2011IL098411

PATIENT
  Age: 43 Year
  Sex: Female

DRUGS (11)
  1. FUROSEMIDE [Concomitant]
  2. DOCETAXEL [Suspect]
  3. GEMCITABINE [Suspect]
  4. CYCLOPHOSPHAMIDE [Suspect]
  5. CAPECITABINE [Suspect]
  6. IRINOTECAN HCL [Suspect]
  7. PACLITAXEL [Suspect]
  8. VINORELBINE [Suspect]
  9. DOXORUBICIN HCL [Suspect]
  10. CARBOPLATIN [Suspect]
  11. MITOMYCIN [Suspect]

REACTIONS (3)
  - HEPATIC FAILURE [None]
  - CARDIAC CIRRHOSIS [None]
  - METASTASES TO BONE [None]
